FAERS Safety Report 10538821 (Version 1)
Quarter: 2014Q4

REPORT INFORMATION
  Report Type: Spontaneous
  Country: US (occurrence: US)
  Receive Date: 20141023
  Receipt Date: 20141023
  Transmission Date: 20150529
  Serious: Yes (Other)
  Sender: FDA-Public Use
  Company Number: US-SHIRE-US201406936

PATIENT
  Age: 49 Year
  Sex: Female
  Weight: 81.63 kg

DRUGS (21)
  1. LAMOTRIGINE. [Concomitant]
     Active Substance: LAMOTRIGINE
     Indication: DEPRESSION
  2. NEXIUM [Concomitant]
     Active Substance: ESOMEPRAZOLE MAGNESIUM
     Indication: GASTROOESOPHAGEAL REFLUX DISEASE
     Dosage: 20 MG, 1X/DAY:QD (IN AM)
     Route: 048
  3. PROZAC [Concomitant]
     Active Substance: FLUOXETINE HYDROCHLORIDE
     Indication: DEPRESSION
     Dosage: 50 MG, 1X/DAY:QD (ONE 10 MG AND ONE 40 MG TABLET IN MORNING)
     Route: 048
  4. FLONASE                            /00908302/ [Concomitant]
     Indication: ASTHMA
     Dosage: 2 PUFFS, 1X/DAY:QD
     Route: 055
  5. HYDROXIZINE HCL [Concomitant]
     Indication: HYPERSENSITIVITY
  6. TYLENOL [Concomitant]
     Active Substance: ACETAMINOPHEN
     Indication: MIGRAINE
     Dosage: 1000 MG, AS REQ^D
     Route: 048
  7. SIMVASTATIN. [Concomitant]
     Active Substance: SIMVASTATIN
     Indication: BLOOD CHOLESTEROL INCREASED
     Dosage: 20 MG, 1X/DAY:QD (AT NIGHT)
     Route: 048
  8. PROZAC [Concomitant]
     Active Substance: FLUOXETINE HYDROCHLORIDE
     Indication: OBSESSIVE-COMPULSIVE DISORDER
  9. TOPAMAX [Concomitant]
     Active Substance: TOPIRAMATE
     Indication: PRODUCT USED FOR UNKNOWN INDICATION
     Dosage: UNK, UNKNOWN
     Route: 065
  10. SINGULAIR [Concomitant]
     Active Substance: MONTELUKAST SODIUM
     Indication: SEASONAL ALLERGY
     Dosage: 10 MG, 1X/DAY:QD (IN PM)
     Route: 048
  11. RELPAX [Concomitant]
     Active Substance: ELETRIPTAN HYDROBROMIDE
     Indication: MIGRAINE
     Dosage: 40 MG, AS REQ^D
     Route: 048
     Dates: start: 2010
  12. DICYCLOMINE                        /00068602/ [Concomitant]
     Indication: GASTROINTESTINAL PAIN
     Dosage: 10 MG, BEFORE EACH MEAL
     Route: 048
  13. HYDROXIZINE HCL [Concomitant]
     Indication: INSOMNIA
     Dosage: 1X/DAY:QD (TWO 25 MG AT NIGHT)
     Route: 048
  14. EXCEDRIN EXTRA STRENGTH [Concomitant]
     Active Substance: ACETAMINOPHEN\ASPIRIN\CAFFEINE
     Indication: MIGRAINE
     Dosage: 2000 MG, (TWO 1000 MG TABLETS) AS REQ^D
     Route: 048
  15. PENTASA [Suspect]
     Active Substance: MESALAMINE
     Indication: CROHN^S DISEASE
     Dosage: 1000 MG(TWO 500 MG CAPSULES, 2X/DAY:BID
     Route: 048
     Dates: start: 20140905
  16. TRAZODONE [Concomitant]
     Active Substance: TRAZODONE HYDROCHLORIDE
     Indication: INSOMNIA
     Dosage: 150 MG, 1X/DAY:QD (THREE 50 MG TABLETS AT HS DAILY)
     Route: 048
  17. OTHER DERMATOLOGICALS [Concomitant]
     Indication: THERAPEUTIC SKIN CARE TOPICAL
     Dosage: UNK, UNKNOWN
     Route: 065
  18. KLONOPIN [Concomitant]
     Active Substance: CLONAZEPAM
     Indication: PANIC ATTACK
     Dosage: 1 MG, 1X/DAY:QD (AT HS)
     Route: 048
  19. LAMOTRIGINE. [Concomitant]
     Active Substance: LAMOTRIGINE
     Indication: BIPOLAR DISORDER
     Dosage: 200 MG, 1X/DAY:QD (IN AM)
     Route: 048
  20. TOPIRAMATE. [Concomitant]
     Active Substance: TOPIRAMATE
     Indication: PRODUCT USED FOR UNKNOWN INDICATION
     Dosage: 100 MG, 1X/DAY:QD (IN AM)
     Route: 048
  21. MUCINEX [Concomitant]
     Active Substance: GUAIFENESIN
     Indication: HYPERSENSITIVITY
     Dosage: 1000 MG, AS REQ^D
     Route: 048

REACTIONS (6)
  - Emotional distress [Not Recovered/Not Resolved]
  - Headache [Not Recovered/Not Resolved]
  - Nephrolithiasis [Not Recovered/Not Resolved]
  - Nausea [Not Recovered/Not Resolved]
  - Abdominal pain [Not Recovered/Not Resolved]
  - Product use issue [Not Recovered/Not Resolved]

NARRATIVE: CASE EVENT DATE: 2014
